FAERS Safety Report 8064746-9 (Version None)
Quarter: 2012Q1

REPORT INFORMATION
  Report Type: 
  Country: None (occurrence: None)
  Receive Date: 20120124
  Receipt Date: 20120111
  Transmission Date: 20120608
  Serious: Yes (Other)
  Sender: FDA-Public Use
  Company Number: BR-AMGEN-BRASP2012003490

PATIENT
  Age: 66 Year
  Sex: Male
  Weight: 70 kg

DRUGS (3)
  1. METHOTREXATE [Concomitant]
     Dosage: UNK
  2. ENBREL [Suspect]
     Indication: PSORIATIC ARTHROPATHY
     Dosage: 50 MG, 1X/WEEK, POWDER AND SOLVENT FOR SOLUTION FOR INJECTION
     Route: 058
     Dates: end: 20110801
  3. ENBREL [Suspect]
     Dosage: UNK, SOLUTION FOR INJECTION IN PRE-FILLED PEN
     Route: 058
     Dates: start: 20111101

REACTIONS (4)
  - CARDIOVASCULAR DISORDER [None]
  - PSORIATIC ARTHROPATHY [None]
  - PSORIASIS [None]
  - INJECTION SITE PAIN [None]
